FAERS Safety Report 5583575-9 (Version None)
Quarter: 2008Q1

REPORT INFORMATION
  Report Type: 
  Country: None (occurrence: None)
  Receive Date: 20080107
  Receipt Date: 20071226
  Transmission Date: 20080703
  Serious: Yes (Hospitalization)
  Sender: FDA-Public Use
  Company Number: PL-GILEAD-2008-0014773

PATIENT
  Sex: Male

DRUGS (3)
  1. ADEFOVIR DIPIVOXIL KIT [Suspect]
     Indication: HEPATITIS B
     Route: 048
     Dates: start: 20070604
  2. OMEPRAZOLE [Concomitant]
     Dates: start: 20050101
  3. FUROSEMIDE [Concomitant]
     Dates: start: 20050101

REACTIONS (1)
  - ASCITES [None]
